FAERS Safety Report 14262140 (Version 1)
Quarter: 2017Q4

REPORT INFORMATION
  Report Type: Spontaneous
  Country: US (occurrence: None)
  Receive Date: 20171208
  Receipt Date: 20171208
  Transmission Date: 20180321
  Serious: No
  Sender: FDA-Public Use
  Company Number: None

PATIENT
  Age: 71 Year
  Sex: Male

DRUGS (2)
  1. CAPECITABINE 500MG GENENTECH [Suspect]
     Active Substance: CAPECITABINE
     Indication: NEOPLASM MALIGNANT
     Dosage: TAKE ONE-150MG WITH THREE-500MG TWICE DAILY 14 DAYS ON, 7 DAYS OFF
     Route: 048
     Dates: start: 20171102
  2. CAPECITABINE 150MG [Suspect]
     Active Substance: CAPECITABINE
     Indication: NEOPLASM MALIGNANT
     Dosage: TAKE ON-150MG WITH THREE-500MG TWICE DAILY FOR 14 DAYS ON, 7 DAYS OFF
     Route: 048
     Dates: start: 20171102

REACTIONS (1)
  - Neuropathy peripheral [None]

NARRATIVE: CASE EVENT DATE: 20171206
